FAERS Safety Report 15318593 (Version 1)
Quarter: 2018Q3

REPORT INFORMATION
  Report Type: Spontaneous
  Country: US (occurrence: US)
  Receive Date: 20180817
  Receipt Date: 20180817
  Transmission Date: 20181010
  Serious: Yes (Disabling)
  Sender: FDA-Public Use
  Company Number: None

PATIENT
  Age: 66 Year
  Sex: Female
  Weight: 85.28 kg

DRUGS (2)
  1. EXTRA STRENGTH ACETAMINOPHEN [Concomitant]
     Active Substance: ACETAMINOPHEN
  2. METOPROLOL TARTRATE 25MG TABLETS [Suspect]
     Active Substance: METOPROLOL TARTRATE
     Indication: HYPERTENSION
     Dosage: ?          QUANTITY:1 TABLET;?
     Route: 048
     Dates: start: 20171207, end: 20180410

REACTIONS (2)
  - Urticaria [None]
  - Rash [None]

NARRATIVE: CASE EVENT DATE: 20170131
